FAERS Safety Report 5507719-X (Version None)
Quarter: 2007Q4

REPORT INFORMATION
  Report Type: 
  Country: None (occurrence: None)
  Receive Date: 20071105
  Receipt Date: 20071105
  Transmission Date: 20080405
  Serious: Yes (Life-Threatening)
  Sender: FDA-Public Use
  Company Number: None

PATIENT
  Age: 40 Year
  Sex: Male
  Weight: 83.9154 kg

DRUGS (4)
  1. TIGER BALM (SPORTS BALM ULTRA STRENGTH) [Suspect]
     Indication: BURSITIS
     Dosage: 2 TABLESPOONS 1 TIME
     Dates: start: 20071028, end: 20071028
  2. TIGER BALM (SPORTS BALM ULTRA STRENGTH) [Suspect]
     Indication: MUSCULOSKELETAL PAIN
     Dosage: 2 TABLESPOONS 1 TIME
     Dates: start: 20071028, end: 20071028
  3. TIGER BALM (SPORTS BALM ULTRA STRENGTH) [Suspect]
     Indication: BURSITIS
     Dosage: 2 TABLESPOONS 1 TIME
     Dates: start: 20071029, end: 20071029
  4. TIGER BALM (SPORTS BALM ULTRA STRENGTH) [Suspect]
     Indication: MUSCULOSKELETAL PAIN
     Dosage: 2 TABLESPOONS 1 TIME
     Dates: start: 20071029, end: 20071029

REACTIONS (7)
  - AGITATION [None]
  - BLOOD PRESSURE INCREASED [None]
  - DYSPNOEA [None]
  - HEART RATE IRREGULAR [None]
  - HYPERHIDROSIS [None]
  - OVERDOSE [None]
  - RESPIRATORY RATE INCREASED [None]
